FAERS Safety Report 26110098 (Version 1)
Quarter: 2025Q4

REPORT INFORMATION
  Report Type: Report from Study
  Country: CN (occurrence: CN)
  Receive Date: 20251201
  Receipt Date: 20251201
  Transmission Date: 20260117
  Serious: Yes (Hospitalization, Other)
  Sender: ABBVIE
  Company Number: CN-ABBVIE-6563737

PATIENT
  Age: 57 Year
  Sex: Male
  Weight: 83 kg

DRUGS (15)
  1. OZURDEX [Suspect]
     Active Substance: DEXAMETHASONE
     Indication: Diabetic retinal oedema
     Dosage: TIME INTERVAL: AS NECESSARY
     Route: 050
     Dates: start: 20250122
  2. NIFEDIPINE [Concomitant]
     Active Substance: NIFEDIPINE
     Indication: Hypertension
     Dosage: 30 MILLIGRAM
     Route: 048
     Dates: start: 2014
  3. AFLIBERCEPT [Concomitant]
     Active Substance: AFLIBERCEPT
     Indication: Diabetic retinal oedema
     Dosage: INTRAVITREOUS INJECTION
     Route: 031
     Dates: start: 20240930, end: 20241205
  4. METFORMIN HYDROCHLORIDE [Concomitant]
     Active Substance: METFORMIN HYDROCHLORIDE
     Indication: Type 2 diabetes mellitus
     Dosage: TIME INTERVAL: 0.33333333 DAYS
     Route: 048
     Dates: start: 2017
  5. TOBRAMYCIN AND DEXAMETHASONE [Concomitant]
     Active Substance: DEXAMETHASONE\TOBRAMYCIN
     Indication: Prophylaxis
     Dosage: APPROPRIATE AMOUNT
     Route: 047
     Dates: start: 20250122, end: 20250122
  6. Tropicamide Phenylephrine [Concomitant]
     Indication: Miosis
     Route: 047
     Dates: start: 20250122, end: 20250122
  7. Tropicamide Phenylephrine [Concomitant]
     Indication: Miosis
     Route: 047
     Dates: start: 20250217, end: 20250217
  8. GATIFLOXACIN [Concomitant]
     Active Substance: GATIFLOXACIN
     Indication: Prophylaxis
     Route: 047
     Dates: start: 20250217, end: 20250217
  9. LEVOFLOXACIN HYDROCHLORIDE [Concomitant]
     Active Substance: LEVOFLOXACIN HYDROCHLORIDE
     Indication: Prophylaxis
     Dosage: TIME INTERVAL: 0.33333333 DAYS
     Route: 047
     Dates: start: 20250218, end: 20250220
  10. LEVOFLOXACIN HYDROCHLORIDE [Concomitant]
     Active Substance: LEVOFLOXACIN HYDROCHLORIDE
     Indication: Prophylaxis
     Dosage: TIME INTERVAL: 0.33333333 DAYS
     Route: 047
     Dates: start: 20250123, end: 20250125
  11. LEVOFLOXACIN HYDROCHLORIDE [Concomitant]
     Active Substance: LEVOFLOXACIN HYDROCHLORIDE
     Indication: Prophylaxis
     Dosage: TIME INTERVAL: 0.16666667 DAYS
     Route: 047
     Dates: start: 20250217, end: 20250217
  12. PROPARACAINE HYDROCHLORIDE [Concomitant]
     Active Substance: PROPARACAINE HYDROCHLORIDE
     Indication: Local anaesthesia
     Route: 047
     Dates: start: 20250217, end: 20250217
  13. INSULIN GLARGINE [Concomitant]
     Active Substance: INSULIN GLARGINE
     Indication: Type 2 diabetes mellitus
     Dosage: TIME INTERVAL: 0.33333333 DAYS
     Route: 058
     Dates: start: 2019
  14. TRIAMCINOLONE ACETONIDE [Concomitant]
     Active Substance: TRIAMCINOLONE ACETONIDE
     Indication: Medical aid in dying
     Dates: start: 20240913, end: 20240913
  15. RANIBIZUMAB [Concomitant]
     Active Substance: RANIBIZUMAB
     Indication: Preoperative care
     Dates: start: 20240712, end: 20240909

REACTIONS (2)
  - Diabetic end stage renal disease [Recovered/Resolved]
  - Cataract subcapsular [Not Recovered/Not Resolved]

NARRATIVE: CASE EVENT DATE: 20250201
